FAERS Safety Report 26014939 (Version 1)
Quarter: 2025Q4

REPORT INFORMATION
  Report Type: Spontaneous
  Country: US (occurrence: US)
  Receive Date: 20251108
  Receipt Date: 20251108
  Transmission Date: 20260118
  Serious: Yes (Hospitalization, Other)
  Sender: SANOFI AVENTIS
  Company Number: US-SA-2025SA330419

PATIENT
  Age: 71 Year
  Sex: Female

DRUGS (28)
  1. DUPIXENT [Suspect]
     Active Substance: DUPILUMAB
     Indication: Greater trochanteric pain syndrome
     Dosage: 600 MG, 1X
     Route: 058
  2. ACTONEL [Concomitant]
     Active Substance: RISEDRONATE SODIUM
  3. ASPIRIN [Concomitant]
     Active Substance: ASPIRIN
  4. AZELASTINE [Concomitant]
     Active Substance: AZELASTINE
  5. BIOTIN [Concomitant]
     Active Substance: BIOTIN
  6. BUPROPION [Concomitant]
     Active Substance: BUPROPION
     Dosage: UNK
  7. CALCIUM [Concomitant]
     Active Substance: CALCIUM
  8. CLONAZEPAM [Concomitant]
     Active Substance: CLONAZEPAM
  9. FERROUS SULFATE [Concomitant]
     Active Substance: FERROUS SULFATE
  10. FISH OIL [Concomitant]
     Active Substance: FISH OIL
  11. FLONASE ALLERGY RELIEF [Concomitant]
     Active Substance: FLUTICASONE PROPIONATE
  12. GABAPENTIN [Concomitant]
     Active Substance: GABAPENTIN
  13. IMITREX [Concomitant]
     Active Substance: SUMATRIPTAN SUCCINATE
  14. IPRATROPIUM [Concomitant]
     Active Substance: IPRATROPIUM
  15. LISINOPRIL [Concomitant]
     Active Substance: LISINOPRIL
  16. MONTELUKAST [Concomitant]
     Active Substance: MONTELUKAST
  17. VITAMINS NOS [Concomitant]
     Active Substance: VITAMINS
  18. NIFEDIPINE [Concomitant]
     Active Substance: NIFEDIPINE
  19. NITROGLYCERIN [Concomitant]
     Active Substance: NITROGLYCERIN
  20. PANTOPRAZOLE [Concomitant]
     Active Substance: PANTOPRAZOLE
  21. PRAMIPEXOLE [Concomitant]
     Active Substance: PRAMIPEXOLE
  22. PYRIDOSTIGMINE [Concomitant]
     Active Substance: PYRIDOSTIGMINE
  23. ROSUVASTATIN [Concomitant]
     Active Substance: ROSUVASTATIN
  24. SODIUM CHLORATE [Concomitant]
     Active Substance: SODIUM CHLORATE
  25. TIZANIDINE [Concomitant]
     Active Substance: TIZANIDINE
  26. VITAMIN D3 [Concomitant]
     Active Substance: CHOLECALCIFEROL
  27. VITAMIN C [Concomitant]
     Active Substance: ASCORBIC ACID
  28. TYLENOL [Concomitant]
     Active Substance: ACETAMINOPHEN

REACTIONS (6)
  - Pneumonia [Not Recovered/Not Resolved]
  - Migraine [Not Recovered/Not Resolved]
  - Diarrhoea [Not Recovered/Not Resolved]
  - Headache [Not Recovered/Not Resolved]
  - Drug ineffective for unapproved indication [Unknown]
  - Depression [Not Recovered/Not Resolved]
